FAERS Safety Report 4508564-4 (Version None)
Quarter: 2004Q4

REPORT INFORMATION
  Report Type: 
  Country: None (occurrence: None)
  Receive Date: 20041123
  Receipt Date: 20040405
  Transmission Date: 20050328
  Serious: No
  Sender: FDA-Public Use
  Company Number: US-GLAXOSMITHKLINE-A0505939A

PATIENT
  Age: 42 Year
  Sex: Female

DRUGS (6)
  1. WELLBUTRIN SR [Suspect]
     Dosage: 50MG PER DAY
     Route: 048
  2. ZANTAC [Concomitant]
  3. PRILOSEC [Concomitant]
  4. TOPAMAX [Concomitant]
  5. ZOLOFT [Concomitant]
  6. ALLEGRA [Concomitant]

REACTIONS (1)
  - RASH [None]
